FAERS Safety Report 17487134 (Version 2)
Quarter: 2020Q1

REPORT INFORMATION
  Report Type: Report from Study
  Country: None (occurrence: US)
  Receive Date: 20200303
  Receipt Date: 20200308
  Transmission Date: 20200409
  Serious: Yes (Other)
  Sender: FDA-Public Use
  Company Number: US-ABBVIE-20K-163-3292099-00

PATIENT
  Age: 77 Year
  Sex: Male

DRUGS (3)
  1. DECITABINE. [Concomitant]
     Active Substance: DECITABINE
     Indication: ACUTE MYELOID LEUKAEMIA
  2. VENCLEXTA [Suspect]
     Active Substance: VENETOCLAX
     Indication: ACUTE MYELOID LEUKAEMIA
     Route: 048
     Dates: start: 20190707
  3. ACYCLOVIR. [Concomitant]
     Active Substance: ACYCLOVIR
     Indication: PRODUCT USED FOR UNKNOWN INDICATION

REACTIONS (8)
  - Procedural pain [Recovering/Resolving]
  - Post procedural contusion [Recovering/Resolving]
  - Post procedural swelling [Recovering/Resolving]
  - Dysuria [Recovered/Resolved]
  - Laboratory test abnormal [Recovering/Resolving]
  - Inguinal hernia [Recovering/Resolving]
  - Post procedural complication [Recovered/Resolved]
  - Peripheral coldness [Recovering/Resolving]

NARRATIVE: CASE EVENT DATE: 20200213
